FAERS Safety Report 4834215-5 (Version None)
Quarter: 2005Q4

REPORT INFORMATION
  Report Type: 
  Country: None (occurrence: None)
  Receive Date: 20051122
  Receipt Date: 20041029
  Transmission Date: 20060501
  Serious: Yes (Hospitalization)
  Sender: FDA-Public Use
  Company Number: 2004CG02201

PATIENT
  Age: 53 Year
  Sex: Male
  Weight: 91 kg

DRUGS (6)
  1. MOPRAL [Suspect]
     Route: 048
  2. TAZOCILLINE [Suspect]
     Route: 042
  3. TARGOCID [Suspect]
     Route: 042
  4. AVLOCARDYL [Concomitant]
  5. DIFFU K [Concomitant]
  6. VITAMIN B1 AND B6 [Concomitant]

REACTIONS (6)
  - ANAEMIA MACROCYTIC [None]
  - CHILLS [None]
  - DERMATITIS EXFOLIATIVE [None]
  - EOSINOPHILIA [None]
  - HAEMATURIA [None]
  - PURPURA [None]
